FAERS Safety Report 18440324 (Version 1)
Quarter: 2020Q4

REPORT INFORMATION
  Report Type: Spontaneous
  Country: US (occurrence: US)
  Receive Date: 20201029
  Receipt Date: 20201029
  Transmission Date: 20210114
  Serious: Yes (Other)
  Sender: FDA-Public Use
  Company Number: US-SA-2020SA295194

PATIENT

DRUGS (6)
  1. RIFAMPICIN [Suspect]
     Active Substance: RIFAMPIN
     Indication: PULMONARY TUBERCULOSIS
     Dosage: 600 MG, STANDARD DOSE
  2. PYRAZINAMIDE. [Suspect]
     Active Substance: PYRAZINAMIDE
     Indication: PULMONARY TUBERCULOSIS
     Dosage: FOR PULMONARY TUBERCULOSIS
  3. PYRAZINAMIDE. [Suspect]
     Active Substance: PYRAZINAMIDE
     Dosage: 2 MONTHS POST SURGERY WITH RIFAPICIN+ISONIAZID+MOXIFLOXACIN +PYRAZINAMIDE
  4. ETHAMBUTOL [Suspect]
     Active Substance: ETHAMBUTOL HYDROCHLORIDE
     Indication: PULMONARY TUBERCULOSIS
  5. RIFAMPICIN [Suspect]
     Active Substance: RIFAMPIN
     Dosage: 1200 MG
  6. ISONIAZID. [Suspect]
     Active Substance: ISONIAZID
     Indication: PULMONARY TUBERCULOSIS

REACTIONS (13)
  - Psoas abscess [Recovered/Resolved]
  - Vomiting [Unknown]
  - Osteomyelitis [Recovered/Resolved]
  - Disease progression [Recovered/Resolved]
  - Liver abscess [Recovered/Resolved]
  - Dehydration [Unknown]
  - Alkalosis hypochloraemic [Unknown]
  - Extradural abscess [Recovered/Resolved]
  - Bone tuberculosis [Recovered/Resolved]
  - Treatment failure [Recovered/Resolved]
  - Disseminated tuberculosis [Recovered/Resolved]
  - Drug level decreased [Unknown]
  - Lumbar vertebral fracture [Unknown]
